FAERS Safety Report 8068938-4 (Version None)
Quarter: 2012Q1

REPORT INFORMATION
  Report Type: 
  Country: None (occurrence: None)
  Receive Date: 20120118
  Receipt Date: 20120104
  Transmission Date: 20120608
  Serious: Yes (Life-Threatening, Hospitalization, Other)
  Sender: FDA-Public Use
  Company Number: 021256

PATIENT
  Age: 54 Year
  Sex: Male
  Weight: 69.7 kg

DRUGS (10)
  1. PEGAPTANIB SODIUM;PLACEBO(CODE NOT BROKEN) UNKNOWN [Suspect]
     Indication: DIABETIC RETINAL OEDEMA
     Dates: start: 20110627, end: 20110914
  2. ATELEC (CILNIDIPINE) [Concomitant]
  3. EPLERENONE [Concomitant]
  4. LASIX [Concomitant]
  5. NIZATIDINE [Concomitant]
  6. BASEN (VOGLIBOSE) [Concomitant]
  7. SELARA (EPLERENONE) [Concomitant]
  8. ASPIRIN [Concomitant]
  9. CRESTOR [Concomitant]
  10. CARVEDILOL [Concomitant]

REACTIONS (16)
  - CARDIAC FAILURE [None]
  - HYPERHIDROSIS [None]
  - ABDOMINAL DISTENSION [None]
  - LACUNAR INFARCTION [None]
  - RHABDOMYOLYSIS [None]
  - COUGH [None]
  - ABDOMINAL PAIN [None]
  - DEHYDRATION [None]
  - URINARY TRACT INFECTION [None]
  - TREATMENT NONCOMPLIANCE [None]
  - HAEMORRHAGE [None]
  - SEPSIS [None]
  - HEPATIC FUNCTION ABNORMAL [None]
  - GASTROINTESTINAL HYPOMOTILITY [None]
  - CEREBRAL INFARCTION [None]
  - DISSEMINATED INTRAVASCULAR COAGULATION [None]
